FAERS Safety Report 14658977 (Version 1)
Quarter: 2018Q1

REPORT INFORMATION
  Report Type: Spontaneous
  Country: US (occurrence: US)
  Receive Date: 20180317
  Receipt Date: 20180317
  Transmission Date: 20180509
  Serious: Yes (Hospitalization)
  Sender: FDA-Public Use
  Company Number: None

PATIENT
  Age: 67 Year
  Sex: Male

DRUGS (29)
  1. HUMIRA [Suspect]
     Active Substance: ADALIMUMAB
     Indication: RHEUMATOID ARTHRITIS
     Route: 058
     Dates: start: 20070803
  2. PROCTOZONE [Concomitant]
     Active Substance: HYDROCORTISONE
  3. PROPO-N/APAP [Concomitant]
  4. CRESTOR [Concomitant]
     Active Substance: ROSUVASTATIN CALCIUM
  5. ALEVE [Concomitant]
     Active Substance: NAPROXEN SODIUM
  6. PREDNISONE. [Concomitant]
     Active Substance: PREDNISONE
  7. ALEVE [Concomitant]
     Active Substance: NAPROXEN SODIUM
  8. FOLIC ACID. [Concomitant]
     Active Substance: FOLIC ACID
  9. METHOTREXATE. [Concomitant]
     Active Substance: METHOTREXATE
  10. AMLODIPINE [Concomitant]
     Active Substance: AMLODIPINE BESYLATE
  11. LYRICA [Concomitant]
     Active Substance: PREGABALIN
  12. CLINDAMYCIN. [Concomitant]
     Active Substance: CLINDAMYCIN
  13. AMOXICILLIN. [Concomitant]
     Active Substance: AMOXICILLIN
  14. FLUTICASONE. [Concomitant]
     Active Substance: FLUTICASONE
  15. TRICOR [Concomitant]
     Active Substance: FENOFIBRATE
  16. FEXOFENADINE [Concomitant]
     Active Substance: FEXOFENADINE\FEXOFENADINE HYDROCHLORIDE
  17. HYDROCO/APAP [Concomitant]
     Active Substance: ACETAMINOPHEN\HYDROCODONE
  18. METAXALONE. [Concomitant]
     Active Substance: METAXALONE
  19. BD SHARPS [Concomitant]
  20. AVELOX [Concomitant]
     Active Substance: MOXIFLOXACIN HYDROCHLORIDE
  21. METOPROL TAR [Concomitant]
  22. LIVALO [Concomitant]
     Active Substance: PITAVASTATIN CALCIUM
  23. METFORMIN [Concomitant]
     Active Substance: METFORMIN HYDROCHLORIDE
  24. ZETIA [Concomitant]
     Active Substance: EZETIMIBE
  25. BONIVA [Concomitant]
     Active Substance: IBANDRONATE SODIUM
  26. LOSARTAN POT [Concomitant]
     Active Substance: LOSARTAN POTASSIUM
  27. TESTOST CYP [Concomitant]
     Active Substance: TESTOSTERONE CYPIONATE
  28. METHADONE [Concomitant]
     Active Substance: METHADONE HYDROCHLORIDE
  29. FENOFIBRATE. [Concomitant]
     Active Substance: FENOFIBRATE

REACTIONS (1)
  - Nervous system neoplasm benign [None]

NARRATIVE: CASE EVENT DATE: 201801
